FAERS Safety Report 4863586-9 (Version None)
Quarter: 2005Q4

REPORT INFORMATION
  Report Type: 
  Country: None (occurrence: None)
  Receive Date: 20051222
  Receipt Date: 20050512
  Transmission Date: 20060501
  Serious: No
  Sender: FDA-Public Use
  Company Number: US-GLAXOSMITHKLINE-A0558330A

PATIENT
  Age: 14 Year
  Sex: Male

DRUGS (4)
  1. FLONASE [Suspect]
     Dosage: 50MCG IN THE MORNING
     Route: 045
     Dates: start: 20030401, end: 20050506
  2. ALLEGRA [Concomitant]
  3. ZOLOFT [Concomitant]
  4. STRATTERA [Concomitant]

REACTIONS (3)
  - DIZZINESS [None]
  - EPISTAXIS [None]
  - HYPERHIDROSIS [None]
